FAERS Safety Report 17416758 (Version 1)
Quarter: 2020Q1

REPORT INFORMATION
  Report Type: Spontaneous
  Country: GR (occurrence: GR)
  Receive Date: 20200214
  Receipt Date: 20200214
  Transmission Date: 20200409
  Serious: Yes (Other)
  Sender: FDA-Public Use
  Company Number: GR-ROCHE-2549756

PATIENT
  Sex: Male

DRUGS (2)
  1. GAZYVARO [Suspect]
     Active Substance: OBINUTUZUMAB
     Indication: B-CELL LYMPHOMA
     Route: 042
  2. CHLORAMBUCIL [Concomitant]
     Active Substance: CHLORAMBUCIL
     Indication: B-CELL LYMPHOMA

REACTIONS (2)
  - Thrombocytopenia [Unknown]
  - Purpura [Unknown]
